FAERS Safety Report 11451577 (Version 1)
Quarter: 2015Q3

REPORT INFORMATION
  Report Type: Spontaneous
  Country: US (occurrence: None)
  Receive Date: 20150902
  Receipt Date: 20150902
  Transmission Date: 20151125
  Serious: Yes (Other)
  Sender: FDA-Public Use
  Company Number: None

PATIENT
  Age: 46 Year
  Sex: Female
  Weight: 83.92 kg

DRUGS (3)
  1. MODAFINIL. [Suspect]
     Active Substance: MODAFINIL
     Indication: SOMNOLENCE
     Dosage: 200MG 1 AND 1/2 TABLET DAILY ORAL
     Route: 048
     Dates: start: 20150619, end: 20150731
  2. MODAFINIL. [Suspect]
     Active Substance: MODAFINIL
     Indication: HYPERSOMNIA
     Dosage: 200MG 1 AND 1/2 TABLET DAILY ORAL
     Route: 048
     Dates: start: 20150619, end: 20150731
  3. MODAFINIL. [Suspect]
     Active Substance: MODAFINIL
     Indication: ATTENTION DEFICIT/HYPERACTIVITY DISORDER
     Dosage: 200MG 1 AND 1/2 TABLET DAILY ORAL
     Route: 048
     Dates: start: 20150619, end: 20150731

REACTIONS (4)
  - Product substitution issue [None]
  - Somnolence [None]
  - Product quality issue [None]
  - Treatment failure [None]

NARRATIVE: CASE EVENT DATE: 20150619
